FAERS Safety Report 10305279 (Version 2)
Quarter: 2014Q3

REPORT INFORMATION
  Report Type: Spontaneous
  Country: GB (occurrence: None)
  Receive Date: 20140710
  Receipt Date: 20140804
  Transmission Date: 20150326
  Serious: Yes (Other)
  Sender: FDA-Public Use
  Company Number: AUR-APL-2014-07217

PATIENT
  Age: 6 Decade

DRUGS (2)
  1. VANCOMYCIN (VANCOMYCIN) [Suspect]
     Active Substance: VANCOMYCIN
     Indication: LUNG ABSCESS
     Route: 042
  2. PIPERACILLINA/TAZOBACTAM [Suspect]
     Active Substance: PIPERACILLIN SODIUM\TAZOBACTAM SODIUM
     Indication: LUNG ABSCESS
     Route: 042

REACTIONS (4)
  - Blood creatinine increased [None]
  - Flank pain [None]
  - Renal impairment [None]
  - Blood urea increased [None]
